FAERS Safety Report 4897584-6 (Version None)
Quarter: 2006Q1

REPORT INFORMATION
  Report Type: 
  Country: None (occurrence: None)
  Receive Date: 20060130
  Receipt Date: 20060130
  Transmission Date: 20060701
  Serious: Yes (Life-Threatening, Hospitalization)
  Sender: FDA-Public Use
  Company Number: None

PATIENT
  Age: 58 Year
  Sex: Male
  Weight: 67 kg

DRUGS (2)
  1. (HURRICAINE) BENZOCAINE TOP 20% SPRAY [Suspect]
     Indication: ANAESTHESIA
     Dosage: 4 SPRAYS
     Dates: start: 20050922
  2. (HURRICAINE) BENZOCAINE TOP 20% SPRAY [Suspect]
     Indication: ECHOCARDIOGRAM
     Dosage: 4 SPRAYS
     Dates: start: 20050922

REACTIONS (1)
  - METHAEMOGLOBINAEMIA [None]
